FAERS Safety Report 8397937-8 (Version None)
Quarter: 2012Q2

REPORT INFORMATION
  Report Type: 
  Country: None (occurrence: None)
  Receive Date: 20120531
  Receipt Date: 20120528
  Transmission Date: 20120825
  Serious: Yes (Other)
  Sender: FDA-Public Use
  Company Number: BR-BAYER-2012-052575

PATIENT
  Age: 42 Year
  Sex: Male

DRUGS (2)
  1. BETASERON [Suspect]
     Indication: MULTIPLE SCLEROSIS
     Dosage: UNK
     Route: 058
  2. UNKNOWN [Concomitant]
     Indication: POOR QUALITY SLEEP
     Dosage: 100 MG, QD
     Route: 048
     Dates: end: 20120501

REACTIONS (4)
  - INJECTION SITE HAEMATOMA [None]
  - INJECTION SITE INFLAMMATION [None]
  - GAIT DISTURBANCE [None]
  - MULTIPLE SCLEROSIS [None]
